FAERS Safety Report 4527496-9 (Version None)
Quarter: 2004Q4

REPORT INFORMATION
  Report Type: 
  Country: None (occurrence: None)
  Receive Date: 20041215
  Receipt Date: 20041208
  Transmission Date: 20050328
  Serious: Yes (Death)
  Sender: FDA-Public Use
  Company Number: JP-BRISTOL-MYERS SQUIBB COMPANY-12790614

PATIENT
  Age: 65 Year
  Sex: Male

DRUGS (2)
  1. BRIPLATIN [Suspect]
     Indication: SMALL CELL LUNG CANCER STAGE UNSPECIFIED
     Route: 041
     Dates: start: 20040506, end: 20040506
  2. LASTET [Suspect]
     Indication: SMALL CELL LUNG CANCER STAGE UNSPECIFIED
     Route: 041
     Dates: start: 20040506, end: 20040508

REACTIONS (1)
  - INTERSTITIAL LUNG DISEASE [None]
